FAERS Safety Report 12680039 (Version 1)
Quarter: 2016Q3

REPORT INFORMATION
  Report Type: Spontaneous
  Country: US (occurrence: US)
  Receive Date: 20160824
  Receipt Date: 20160824
  Transmission Date: 20161109
  Serious: Yes (Other)
  Sender: FDA-Public Use
  Company Number: US-NOVOPROD-506059

PATIENT
  Age: 48 Year
  Sex: Female
  Weight: 126.98 kg

DRUGS (1)
  1. LEVEMIR [Suspect]
     Active Substance: INSULIN DETEMIR
     Indication: TYPE 2 DIABETES MELLITUS
     Route: 058
     Dates: start: 2010, end: 2014

REACTIONS (3)
  - Hypoglycaemia [Recovered/Resolved]
  - Neuropathic arthropathy [Not Recovered/Not Resolved]
  - Glycosylated haemoglobin increased [Recovered/Resolved]

NARRATIVE: CASE EVENT DATE: 2013
